FAERS Safety Report 5812050-9 (Version None)
Quarter: 2008Q3

REPORT INFORMATION
  Report Type: 
  Country: None (occurrence: None)
  Receive Date: 20080716
  Receipt Date: 20080714
  Transmission Date: 20090109
  Serious: Yes (Death, Hospitalization)
  Sender: FDA-Public Use
  Company Number: PHHY2008ES13811

PATIENT
  Age: 80 Year
  Sex: Male

DRUGS (2)
  1. GLEEVEC [Suspect]
     Dosage: 400 MG, QD
     Route: 048
     Dates: end: 20080501
  2. GLEEVEC [Suspect]
     Dosage: UNK
     Route: 048
     Dates: start: 20080611

REACTIONS (1)
  - CARDIAC FAILURE [None]
